FAERS Safety Report 7082871-6 (Version None)
Quarter: 2010Q4

REPORT INFORMATION
  Report Type: 
  Country: None (occurrence: None)
  Receive Date: 20101104
  Receipt Date: 20101020
  Transmission Date: 20110411
  Serious: Yes (Hospitalization, Other)
  Sender: FDA-Public Use
  Company Number: PHHY2010CA64506

PATIENT
  Sex: Female

DRUGS (12)
  1. ALISKIREN ALI+ [Suspect]
     Indication: HYPERTENSION
     Dosage: 300 MG DAILY
     Route: 048
     Dates: start: 20091021, end: 20100518
  2. DIURETICS [Concomitant]
     Dosage: UNK
  3. CALCIUM CHANNEL BLOCKERS [Concomitant]
  4. ACE INHIBITOR NOS [Concomitant]
  5. LIPITOR [Concomitant]
     Dosage: 10 QD
  6. METFORMIN [Concomitant]
     Dosage: 1 G, BID
  7. DILTIAZEM [Concomitant]
     Dosage: 240 QD
  8. ALDACTAZIDE [Concomitant]
     Dosage: 50 QD
  9. COZAAR [Concomitant]
     Dosage: 50 QD
  10. LISINOPRIL [Concomitant]
     Dosage: 20 BID
  11. ACTOS [Concomitant]
     Dosage: 15 QD
  12. GLYBURIDE [Concomitant]
     Dosage: 10 BID

REACTIONS (2)
  - HYPERKALAEMIA [None]
  - HYPERTENSION [None]
